FAERS Safety Report 11503389 (Version 2)
Quarter: 2015Q4

REPORT INFORMATION
  Report Type: Spontaneous
  Country: US (occurrence: US)
  Receive Date: 20150914
  Receipt Date: 20151229
  Transmission Date: 20160304
  Serious: Yes (Death)
  Sender: FDA-Public Use
  Company Number: US-ASTELLAS-2015US024772

PATIENT
  Age: 87 Year
  Sex: Male

DRUGS (2)
  1. XTANDI [Suspect]
     Active Substance: ENZALUTAMIDE
     Route: 065
     Dates: start: 20150618, end: 20150723
  2. XTANDI [Suspect]
     Active Substance: ENZALUTAMIDE
     Indication: PROSTATE CANCER
     Route: 048
     Dates: start: 20150512

REACTIONS (5)
  - Abasia [Unknown]
  - Adverse event [Recovered/Resolved]
  - Weight decreased [Unknown]
  - Death [Fatal]
  - Dyspepsia [Unknown]

NARRATIVE: CASE EVENT DATE: 20150602
